FAERS Safety Report 16825139 (Version 2)
Quarter: 2019Q3

REPORT INFORMATION
  Report Type: Spontaneous
  Country: NL (occurrence: NL)
  Receive Date: 20190919
  Receipt Date: 20190923
  Transmission Date: 20191005
  Serious: Yes (Other)
  Sender: FDA-Public Use
  Company Number: PHHY2019NL213697

PATIENT
  Age: 71 Year
  Sex: Male

DRUGS (2)
  1. DEXAMETHASONE. [Concomitant]
     Active Substance: DEXAMETHASONE
     Indication: PRODUCT USED FOR UNKNOWN INDICATION
     Dosage: UNK
     Route: 065
  2. METHOTREXATE. [Suspect]
     Active Substance: METHOTREXATE
     Indication: LYMPHOMA
     Dosage: UNK (THREE COURSES)
     Route: 065

REACTIONS (10)
  - Post herpetic neuralgia [Recovering/Resolving]
  - Disease progression [Unknown]
  - Herpes zoster [Recovered/Resolved]
  - Oedema [Unknown]
  - Amnesia [Unknown]
  - Malignant neoplasm progression [Unknown]
  - Cognitive disorder [Recovering/Resolving]
  - Pain [Recovered/Resolved]
  - Apathy [Unknown]
  - Product use in unapproved indication [Unknown]
